FAERS Safety Report 16639121 (Version 1)
Quarter: 2019Q3

REPORT INFORMATION
  Report Type: Spontaneous
  Country: SK (occurrence: SK)
  Receive Date: 20190726
  Receipt Date: 20190726
  Transmission Date: 20191004
  Serious: Yes (Life-Threatening, Disabling, Other)
  Sender: FDA-Public Use
  Company Number: SK-MYLANLABS-2019M1070748

PATIENT
  Age: 50 Year
  Sex: Male

DRUGS (3)
  1. ALPRAZOLAM. [Concomitant]
     Active Substance: ALPRAZOLAM
     Indication: MAJOR DEPRESSION
     Dosage: UNK
  2. TIANEPTINE [Suspect]
     Active Substance: TIANEPTINE
     Indication: MAJOR DEPRESSION
     Dosage: UNK
     Route: 065
  3. ZOLPIDEM [Suspect]
     Active Substance: ZOLPIDEM TARTRATE
     Indication: MAJOR DEPRESSION
     Dosage: UNK
     Route: 065

REACTIONS (10)
  - Anxiety [Recovered/Resolved]
  - Bradykinesia [Recovered/Resolved]
  - Abulia [Recovered/Resolved]
  - Weight decreased [Unknown]
  - Irritability [Recovered/Resolved]
  - Insomnia [Recovered/Resolved]
  - Anhedonia [Recovered/Resolved]
  - Depressed mood [Recovered/Resolved]
  - Decreased appetite [Recovered/Resolved]
  - Reduced facial expression [Recovered/Resolved]
